FAERS Safety Report 12412189 (Version 1)
Quarter: 2016Q2

REPORT INFORMATION
  Report Type: Spontaneous
  Country: US (occurrence: US)
  Receive Date: 20160527
  Receipt Date: 20160527
  Transmission Date: 20160815
  Serious: No
  Sender: FDA-Public Use
  Company Number: US-BAYER-2016-095701

PATIENT
  Age: 26 Year
  Sex: Female

DRUGS (1)
  1. MIRENA [Suspect]
     Active Substance: LEVONORGESTREL
     Indication: CONTRACEPTION
     Dosage: 20 MCG/24HR, CONT
     Route: 015
     Dates: start: 20160517, end: 20160517

REACTIONS (4)
  - Post procedural discomfort [None]
  - Patient-device incompatibility [None]
  - Procedural pain [None]
  - Device difficult to use [None]

NARRATIVE: CASE EVENT DATE: 20160517
